FAERS Safety Report 4888402-0 (Version None)
Quarter: 2006Q1

REPORT INFORMATION
  Report Type: 
  Country: None (occurrence: None)
  Receive Date: 20060119
  Receipt Date: 20060113
  Transmission Date: 20060701
  Serious: Yes (Death)
  Sender: FDA-Public Use
  Company Number: 2005-US-00893

PATIENT
  Age: 51 Year
  Sex: Male

DRUGS (1)
  1. CLOZAPINE [Suspect]
     Indication: SCHIZOPHRENIA
     Dosage: 250 MG, QD, ORAL
     Route: 048
     Dates: start: 20050101, end: 20051001

REACTIONS (3)
  - BLOOD POTASSIUM INCREASED [None]
  - CARDIAC FAILURE [None]
  - RENAL FAILURE [None]
